FAERS Safety Report 14922624 (Version 5)
Quarter: 2018Q2

REPORT INFORMATION
  Report Type: Spontaneous
  Country: US (occurrence: US)
  Receive Date: 20180522
  Receipt Date: 20180615
  Transmission Date: 20180711
  Serious: Yes (Hospitalization, Other)
  Sender: FDA-Public Use
  Company Number: US-UNITED THERAPEUTICS-UNT-2018-007027

PATIENT
  Age: 86 Year
  Sex: Female
  Weight: 99.32 kg

DRUGS (2)
  1. REVATIO [Concomitant]
     Active Substance: SILDENAFIL CITRATE
     Indication: PRODUCT USED FOR UNKNOWN INDICATION
     Route: 065
  2. REMODULIN [Suspect]
     Active Substance: TREPROSTINIL
     Indication: PULMONARY ARTERIAL HYPERTENSION
     Dosage: 0.084 ?G/KG, CONTINUING
     Route: 041
     Dates: start: 20150324

REACTIONS (6)
  - Vascular device infection [Unknown]
  - Dermatitis contact [Unknown]
  - Staphylococcal sepsis [Unknown]
  - Drug dose omission [Unknown]
  - Pneumonia [Unknown]
  - Dyspnoea exertional [Unknown]

NARRATIVE: CASE EVENT DATE: 20180529
